FAERS Safety Report 25024627 (Version 1)
Quarter: 2025Q1

REPORT INFORMATION
  Report Type: Spontaneous
  Country: US (occurrence: US)
  Receive Date: 20250228
  Receipt Date: 20250228
  Transmission Date: 20250409
  Serious: No
  Sender: DR REDDYS
  Company Number: US-DRL-USA-USA/2025/02/003108

PATIENT
  Age: 85 Year
  Sex: Female

DRUGS (2)
  1. DIFLUPREDNATE [Suspect]
     Active Substance: DIFLUPREDNATE
     Indication: Eye inflammation
  2. BROMFENAC [Concomitant]
     Active Substance: BROMFENAC
     Indication: Eye inflammation
     Dosage: TOPICAL OCULAR BROMFENAC OPHTHALMIC SOLUTION

REACTIONS (1)
  - Drug ineffective [Unknown]
